FAERS Safety Report 4919958-7 (Version None)
Quarter: 2006Q1

REPORT INFORMATION
  Report Type: 
  Country: None (occurrence: None)
  Receive Date: 20060223
  Receipt Date: 20060214
  Transmission Date: 20060701
  Serious: Yes (Other)
  Sender: FDA-Public Use
  Company Number: US-JNJFOC-20060203353

PATIENT
  Sex: Female

DRUGS (1)
  1. REMICADE [Suspect]
     Indication: RHEUMATOID ARTHRITIS
     Route: 042

REACTIONS (7)
  - ARTHRALGIA [None]
  - BACTERIAL INFECTION [None]
  - CELLULITIS [None]
  - LUNG DISORDER [None]
  - OEDEMA PERIPHERAL [None]
  - TUBERCULOSIS [None]
  - VIRAL INFECTION [None]
